FAERS Safety Report 9259912 (Version 1)
Quarter: 2013Q2

REPORT INFORMATION
  Report Type: Spontaneous
  Country: GB (occurrence: GB)
  Receive Date: 20130429
  Receipt Date: 20130429
  Transmission Date: 20140414
  Serious: Yes (Other)
  Sender: FDA-Public Use
  Company Number: GB-ROCHE-1218871

PATIENT
  Sex: 0

DRUGS (2)
  1. LUCENTIS [Suspect]
     Indication: MACULAR DEGENERATION
     Route: 050
  2. GEMCITABINE [Interacting]
     Indication: PRODUCT USED FOR UNKNOWN INDICATION
     Route: 065

REACTIONS (2)
  - Pancreatic carcinoma [Unknown]
  - Drug interaction [Unknown]
